FAERS Safety Report 15198375 (Version 1)
Quarter: 2018Q3

REPORT INFORMATION
  Report Type: Report from Study
  Country: US (occurrence: US)
  Receive Date: 20180725
  Receipt Date: 20180725
  Transmission Date: 20181010
  Serious: Yes (Other)
  Sender: FDA-Public Use
  Company Number: US-VIFOR (INTERNATIONAL) INC.-VIT-2018-02564

PATIENT
  Age: 78 Year
  Sex: Female

DRUGS (4)
  1. VELTASSA [Suspect]
     Active Substance: PATIROMER
     Dates: start: 201803
  2. VELTASSA [Suspect]
     Active Substance: PATIROMER
     Dates: start: 20180310
  3. VELTASSA [Suspect]
     Active Substance: PATIROMER
     Dosage: 2 PACKETS DAILY
     Dates: start: 20180309
  4. VELTASSA [Suspect]
     Active Substance: PATIROMER
     Indication: PRODUCT USED FOR UNKNOWN INDICATION
     Dates: start: 201802

REACTIONS (4)
  - Gastrointestinal disorder [Unknown]
  - Drug dose omission [Unknown]
  - Diarrhoea [Recovering/Resolving]
  - Flatulence [Unknown]

NARRATIVE: CASE EVENT DATE: 2018
